FAERS Safety Report 4631642-6 (Version None)
Quarter: 2005Q2

REPORT INFORMATION
  Report Type: 
  Country: None (occurrence: None)
  Receive Date: 20050407
  Receipt Date: 20050328
  Transmission Date: 20051028
  Serious: Yes (Death, Hospitalization)
  Sender: FDA-Public Use
  Company Number: 2005044569

PATIENT
  Age: 62 Year
  Sex: Male

DRUGS (1)
  1. LINEZOLID SOLUTION, STERILE (LINEZOLID) [Suspect]
     Indication: STAPHYLOCOCCAL INFECTION
     Dosage: 1200 MG (600 MG, 2 IN 1 D), INTRAVENOUS
     Route: 042
     Dates: start: 20050201, end: 20050201

REACTIONS (8)
  - DISEASE PROGRESSION [None]
  - HAEMOGLOBIN DECREASED [None]
  - LEUKOPENIA [None]
  - MULTI-ORGAN FAILURE [None]
  - PNEUMONIA [None]
  - SEPTIC SHOCK [None]
  - SERRATIA INFECTION [None]
  - THROMBOCYTOPENIA [None]
